FAERS Safety Report 4677499-9 (Version None)
Quarter: 2005Q2

REPORT INFORMATION
  Report Type: 
  Country: None (occurrence: None)
  Receive Date: 20050527
  Receipt Date: 20050527
  Transmission Date: 20051028
  Serious: No
  Sender: FDA-Public Use
  Company Number: None

PATIENT
  Age: 51 Year
  Sex: Female
  Weight: 99.7913 kg

DRUGS (1)
  1. OMNIPAQUE 300 [Suspect]
     Indication: PELVIC PAIN
     Dosage: 140ML   IV  INTRAVENOUS
     Route: 042
     Dates: start: 20050525, end: 20050525

REACTIONS (3)
  - INFUSION RELATED REACTION [None]
  - THROAT TIGHTNESS [None]
  - URTICARIA [None]
